FAERS Safety Report 4390901-5 (Version None)
Quarter: 2004Q2

REPORT INFORMATION
  Report Type: 
  Country: None (occurrence: None)
  Receive Date: 20040630
  Receipt Date: 20040615
  Transmission Date: 20050107
  Serious: Yes (Hospitalization)
  Sender: FDA-Public Use
  Company Number: 152596

PATIENT
  Age: 55 Year
  Sex: Female
  Weight: 50.8029 kg

DRUGS (4)
  1. AVONEX [Suspect]
     Indication: MULTIPLE SCLEROSIS
     Dosage: SEE IMAGE
     Route: 030
     Dates: start: 20000207, end: 20010605
  2. PREDNISONE [Concomitant]
  3. BACLOFEN [Concomitant]
  4. FOSAMAX [Concomitant]

REACTIONS (7)
  - BLADDER CANCER [None]
  - DISEASE RECURRENCE [None]
  - DYSPNOEA [None]
  - HEADACHE [None]
  - NEPHROLITHIASIS [None]
  - THROMBOSIS [None]
  - URINARY TRACT INFECTION [None]
